FAERS Safety Report 13680167 (Version 3)
Quarter: 2017Q3

REPORT INFORMATION
  Report Type: Spontaneous
  Country: US (occurrence: US)
  Receive Date: 20170622
  Receipt Date: 20170829
  Transmission Date: 20171127
  Serious: Yes (Hospitalization)
  Sender: FDA-Public Use
  Company Number: US-ACTELION-A-US2017-155555

PATIENT
  Age: 62 Year
  Sex: Male

DRUGS (22)
  1. ISENTRESS [Concomitant]
     Active Substance: RALTEGRAVIR POTASSIUM
  2. LORAZEPAM. [Concomitant]
     Active Substance: LORAZEPAM
  3. MIRTAZAPINE. [Concomitant]
     Active Substance: MIRTAZAPINE
  4. OXYCONTIN [Concomitant]
     Active Substance: OXYCODONE HYDROCHLORIDE
  5. REVATIO [Concomitant]
     Active Substance: SILDENAFIL CITRATE
  6. VITAMIN D [Concomitant]
     Active Substance: CHOLECALCIFEROL
     Dosage: 5000 U, UNK
  7. LOVAZA [Concomitant]
     Active Substance: OMEGA-3-ACID ETHYL ESTERS
  8. OMEPRAZOLE. [Concomitant]
     Active Substance: OMEPRAZOLE
  9. DIGOXIN. [Concomitant]
     Active Substance: DIGOXIN
  10. SERTRALINE [Concomitant]
     Active Substance: SERTRALINE HYDROCHLORIDE
  11. SPIRONOLACTONE. [Concomitant]
     Active Substance: SPIRONOLACTONE
  12. OXYCODONE HYDROCHLORIDE. [Concomitant]
     Active Substance: OXYCODONE HYDROCHLORIDE
  13. TRUVADA [Concomitant]
     Active Substance: EMTRICITABINE\TENOFOVIR DISOPROXIL FUMARATE
  14. PROAIR HFA [Concomitant]
     Active Substance: ALBUTEROL SULFATE
  15. BUMETANIDE. [Concomitant]
     Active Substance: BUMETANIDE
  16. TRACLEER [Suspect]
     Active Substance: BOSENTAN
     Indication: PULMONARY ARTERIAL HYPERTENSION
     Dosage: 125 MG, BID
     Route: 048
     Dates: start: 2012
  17. LISINOPRIL. [Concomitant]
     Active Substance: LISINOPRIL
  18. VENTOLIN HFA [Concomitant]
     Active Substance: ALBUTEROL SULFATE
  19. GABAPENTIN. [Concomitant]
     Active Substance: GABAPENTIN
  20. FUROSEMIDE. [Concomitant]
     Active Substance: FUROSEMIDE
  21. CARVEDILOL. [Concomitant]
     Active Substance: CARVEDILOL
  22. SPIRIVA [Concomitant]
     Active Substance: TIOTROPIUM BROMIDE MONOHYDRATE

REACTIONS (12)
  - Syncope [Recovered/Resolved]
  - Myocardial infarction [Recovered/Resolved]
  - Pleural effusion [Recovering/Resolving]
  - Fluid overload [Recovered/Resolved]
  - Pulmonary oedema [Recovering/Resolving]
  - Aspiration pleural cavity [Recovering/Resolving]
  - Dizziness postural [Recovered/Resolved]
  - Memory impairment [Not Recovered/Not Resolved]
  - Fall [Recovering/Resolving]
  - Multiple organ dysfunction syndrome [Unknown]
  - Respiratory disorder [Unknown]
  - Skin abrasion [Recovering/Resolving]

NARRATIVE: CASE EVENT DATE: 20170612
